FAERS Safety Report 10547884 (Version 1)
Quarter: 2014Q4

REPORT INFORMATION
  Report Type: Spontaneous
  Country: US (occurrence: None)
  Receive Date: 20141024
  Receipt Date: 20141024
  Transmission Date: 20150529
  Serious: No
  Sender: FDA-Public Use
  Company Number: KZ2014GSK000969

PATIENT
  Age: 34 Year
  Sex: Male
  Weight: 73 kg

DRUGS (2)
  1. COMBIVIR [Suspect]
     Active Substance: LAMIVUDINE\ZIDOVUDINE
     Indication: HIV INFECTION
     Route: 048
     Dates: start: 20131114, end: 20131203
  2. VIROLEX [Suspect]
     Active Substance: ACYCLOVIR
     Indication: HIV INFECTION
     Route: 048
     Dates: start: 20131114

REACTIONS (5)
  - Body temperature increased [None]
  - Respiratory tract infection viral [None]
  - Chest discomfort [None]
  - Dermatitis allergic [None]
  - Rash generalised [None]

NARRATIVE: CASE EVENT DATE: 20131129
